FAERS Safety Report 20731416 (Version 1)
Quarter: 2022Q2

REPORT INFORMATION
  Report Type: Spontaneous
  Country: IR (occurrence: IR)
  Receive Date: 20220420
  Receipt Date: 20220420
  Transmission Date: 20220721
  Serious: Yes (Hospitalization, Other)
  Sender: FDA-Public Use
  Company Number: IR-INSUD PHARMA-2204IR01455

PATIENT

DRUGS (1)
  1. NUVESSA [Suspect]
     Active Substance: METRONIDAZOLE
     Indication: Infection prophylaxis
     Dosage: 500 MILLIGRAM AT A RATE OF 5 MG/MIN
     Route: 042

REACTIONS (4)
  - Anaphylactic shock [Recovering/Resolving]
  - Ventricular tachycardia [Recovering/Resolving]
  - Hypotension [Recovering/Resolving]
  - Arrhythmia [Recovering/Resolving]
